FAERS Safety Report 16393191 (Version 2)
Quarter: 2019Q3

REPORT INFORMATION
  Report Type: Spontaneous
  Country: JP (occurrence: JP)
  Receive Date: 20190605
  Receipt Date: 20190703
  Transmission Date: 20191004
  Serious: Yes (Hospitalization)
  Sender: FDA-Public Use
  Company Number: JP-TEVA-2019-JP-1058543

PATIENT
  Age: 70 Year
  Sex: Male

DRUGS (7)
  1. SITAGLIPTIN [Concomitant]
     Active Substance: SITAGLIPTIN
     Indication: TYPE 2 DIABETES MELLITUS
     Route: 065
  2. PICOSULFATE [Concomitant]
     Active Substance: SODIUM PICOSULFATE
     Indication: CONSTIPATION
     Route: 065
  3. CIMETIDINE [Suspect]
     Active Substance: CIMETIDINE
     Indication: ANTIALLERGIC THERAPY
     Route: 065
  4. METFORMIN [Concomitant]
     Active Substance: METFORMIN HYDROCHLORIDE
     Indication: TYPE 2 DIABETES MELLITUS
     Route: 065
  5. MAGNESIUM OXIDE. [Concomitant]
     Active Substance: MAGNESIUM OXIDE
     Route: 065
  6. AMLODIPINE [Concomitant]
     Active Substance: AMLODIPINE BESYLATE
     Indication: HYPERTENSION
     Route: 065
  7. YAKUBAN [Suspect]
     Active Substance: FLURBIPROFEN
     Indication: PERIARTHRITIS
     Dosage: 60MG FOUR TIMES A DAY? TAPE
     Route: 062

REACTIONS (5)
  - Clostridium difficile infection [Unknown]
  - Dysbiosis [Unknown]
  - Aeromonas infection [Unknown]
  - Small intestine ulcer [Recovering/Resolving]
  - Ileus [Recovered/Resolved]
